FAERS Safety Report 5788309-0 (Version None)
Quarter: 2008Q2

REPORT INFORMATION
  Report Type: 
  Country: None (occurrence: None)
  Receive Date: 20080625
  Receipt Date: 20080617
  Transmission Date: 20081010
  Serious: Yes (Other)
  Sender: FDA-Public Use
  Company Number: US-PFIZER INC-2008044267

PATIENT
  Sex: Female

DRUGS (6)
  1. SUTENT [Suspect]
     Indication: RENAL CELL CARCINOMA
  2. CARAFATE [Concomitant]
  3. NORVASC [Concomitant]
  4. HYDROCHLOROTHIAZIDE [Concomitant]
  5. XANAX [Concomitant]
  6. DILAUDID [Concomitant]

REACTIONS (4)
  - ANGIOEDEMA [None]
  - PLATELET COUNT DECREASED [None]
  - URTICARIA [None]
  - WHITE BLOOD CELL COUNT DECREASED [None]
